FAERS Safety Report 5490813-X (Version None)
Quarter: 2007Q4

REPORT INFORMATION
  Report Type: 
  Country: None (occurrence: None)
  Receive Date: 20071019
  Receipt Date: 20071009
  Transmission Date: 20080405
  Serious: Yes (Hospitalization)
  Sender: FDA-Public Use
  Company Number: JP-ROCHE-489378

PATIENT
  Age: 24 Year
  Sex: Female

DRUGS (4)
  1. TAMIFLU [Suspect]
     Dosage: DRUG NAME: TAMIFLU CAPSULE
     Route: 048
     Dates: start: 20070318, end: 20070320
  2. COLD REMEDY NOS [Concomitant]
     Dosage: DRUG NAME: AGENTS USED FOR COMMON COLD (COMBINATION COLD REMEDY) ORAL FORMULATION (NOT OTHERWISE SP+
     Route: 048
  3. ACETAMINOPHEN [Concomitant]
  4. ANTIBIOTIC NOS [Concomitant]
     Dosage: DRUG NAME: OTHER ANTIBIOTIC PREPARATIONS (INCLUDING MIXED ANTIBIOTIC)

REACTIONS (1)
  - LIVER DISORDER [None]
